FAERS Safety Report 16121235 (Version 1)
Quarter: 2019Q1

REPORT INFORMATION
  Report Type: Spontaneous
  Country: FR (occurrence: FR)
  Receive Date: 20190327
  Receipt Date: 20190327
  Transmission Date: 20190418
  Serious: Yes (Hospitalization)
  Sender: FDA-Public Use
  Company Number: FR-AXELLIA-002334

PATIENT
  Age: 65 Year
  Sex: Male

DRUGS (1)
  1. DAPTOMYCIN. [Suspect]
     Active Substance: DAPTOMYCIN
     Indication: ENDOCARDITIS
     Route: 042
     Dates: start: 20180106, end: 20180217

REACTIONS (3)
  - Rhabdomyolysis [Recovered/Resolved]
  - Overdose [Unknown]
  - Sinus tachycardia [Recovered/Resolved]

NARRATIVE: CASE EVENT DATE: 201801
